FAERS Safety Report 4773256-3 (Version None)
Quarter: 2005Q3

REPORT INFORMATION
  Report Type: 
  Country: None (occurrence: None)
  Receive Date: 20050916
  Receipt Date: 20050912
  Transmission Date: 20060218
  Serious: Yes (Other)
  Sender: FDA-Public Use
  Company Number: 200510978BWH

PATIENT
  Sex: Female

DRUGS (2)
  1. CIPRO IV [Suspect]
     Indication: DIVERTICULITIS
     Dosage: INTRAVENOUS
     Route: 042
  2. CIPRO [Suspect]
     Indication: DIVERTICULITIS
     Dosage: ORAL
     Route: 048

REACTIONS (13)
  - ACTIVITIES OF DAILY LIVING IMPAIRED [None]
  - ARTHRITIS [None]
  - BACK PAIN [None]
  - BLISTER [None]
  - FATIGUE [None]
  - IMMUNE SYSTEM DISORDER [None]
  - LABORATORY TEST ABNORMAL [None]
  - MYALGIA [None]
  - OEDEMA PERIPHERAL [None]
  - PAIN [None]
  - PNEUMONIA [None]
  - TENDON RUPTURE [None]
  - THERAPY NON-RESPONDER [None]
